FAERS Safety Report 9305120 (Version 1)
Quarter: 2013Q2

REPORT INFORMATION
  Report Type: Spontaneous
  Country: US (occurrence: US)
  Receive Date: 20130523
  Receipt Date: 20130523
  Transmission Date: 20140414
  Serious: Yes (Other)
  Sender: FDA-Public Use
  Company Number: US-BAYER-2013-060824

PATIENT
  Age: 21 Year
  Sex: Female
  Weight: 75.28 kg

DRUGS (3)
  1. YAZ [Suspect]
     Dosage: UNK UNK, QD
  2. MUCINEX [Concomitant]
  3. PAROXETINE [Concomitant]
     Dosage: 0.5 DF, QD

REACTIONS (1)
  - Thrombophlebitis [None]
